FAERS Safety Report 7913717-9 (Version None)
Quarter: 2011Q4

REPORT INFORMATION
  Report Type: 
  Country: None (occurrence: None)
  Receive Date: 20111115
  Receipt Date: 20111103
  Transmission Date: 20120403
  Serious: Yes (Hospitalization, Other)
  Sender: FDA-Public Use
  Company Number: US-BAYER-2010-006362

PATIENT
  Age: 34 Year
  Sex: Female
  Weight: 83.9 kg

DRUGS (10)
  1. PROMETHAZINE [Concomitant]
     Dosage: 25 MG, UNK
     Dates: start: 20071207
  2. YAZ [Suspect]
     Indication: CONTRACEPTION
     Dosage: UNK
     Dates: start: 20071101, end: 20080801
  3. LEXAPRO [Concomitant]
     Indication: DEPRESSION
     Dosage: UNK
     Dates: start: 20040201
  4. LORTAB [Concomitant]
     Indication: PAIN
  5. DICYCLOMINE [Concomitant]
     Dosage: 10 MG, UNK
     Dates: start: 20080112
  6. ZITHROMAX [Concomitant]
     Dosage: UNK
     Dates: start: 20080128
  7. AZITHROMYCIN [Concomitant]
     Dosage: 250 MG, UNK
     Dates: start: 20080112
  8. YAZ [Suspect]
     Indication: ACNE
  9. PROMETHAZINE VC W/CODEINE [CODEINE PHOS,PHENYLEPHR HCL,PROMETHAZ H [Concomitant]
     Dosage: UNK
     Dates: start: 20080112
  10. NEXIUM [Concomitant]
     Dosage: 40 MG, UNK
     Dates: start: 20080112

REACTIONS (11)
  - EMOTIONAL DISTRESS [None]
  - CHOLESTEROSIS [None]
  - BIPOLAR DISORDER [None]
  - ANXIETY [None]
  - GENERAL PHYSICAL HEALTH DETERIORATION [None]
  - CHOLECYSTITIS CHRONIC [None]
  - GALLBLADDER DISORDER [None]
  - DEPRESSION [None]
  - ABDOMINAL PAIN [None]
  - DIARRHOEA [None]
  - INJURY [None]
